FAERS Safety Report 23313391 (Version 2)
Quarter: 2024Q1

REPORT INFORMATION
  Report Type: Spontaneous
  Country: FR (occurrence: FR)
  Receive Date: 20231219
  Receipt Date: 20240108
  Transmission Date: 20240409
  Serious: Yes (Death, Hospitalization)
  Sender: FDA-Public Use
  Company Number: None

PATIENT
  Age: 45 Year
  Sex: Female

DRUGS (7)
  1. PIPERACILLIN SODIUM\TAZOBACTAM SODIUM [Suspect]
     Active Substance: PIPERACILLIN SODIUM\TAZOBACTAM SODIUM
     Indication: Infection
     Dosage: 16 G, 1X/DAY
     Route: 042
     Dates: start: 20231109, end: 20231121
  2. LINEZOLID [Suspect]
     Active Substance: LINEZOLID
     Indication: Infection
     Dosage: 1.2 G, 1X/DAY
     Route: 042
     Dates: start: 20231109, end: 20231125
  3. DAUNORUBICIN [Suspect]
     Active Substance: DAUNORUBICIN
     Indication: Acute myeloid leukaemia
     Dosage: 180 MG, 1X/DAY
     Route: 042
     Dates: start: 20231108, end: 20231110
  4. CYTARABINE [Suspect]
     Active Substance: CYTARABINE
     Indication: Acute myeloid leukaemia
     Dosage: 400 MG, 1X/DAY
     Route: 042
     Dates: start: 20231107, end: 20231113
  5. AMBISOME [Suspect]
     Active Substance: AMPHOTERICIN B
     Indication: Infection
     Dosage: 250 MG, DAILY, FREQ:24 H;
     Route: 042
     Dates: start: 20231117, end: 20231121
  6. MIDOSTAURIN [Suspect]
     Active Substance: MIDOSTAURIN
     Indication: Acute myeloid leukaemia
     Dosage: 100 MG, DAILY
     Route: 048
     Dates: start: 20231115, end: 20231121
  7. ACYCLOVIR [Concomitant]
     Active Substance: ACYCLOVIR
     Dosage: 250 MG, 3X/DAY, FREQ:8 H;
     Route: 042
     Dates: start: 20231118, end: 20231121

REACTIONS (2)
  - Neoplasm progression [Fatal]
  - Hyperbilirubinaemia [Recovering/Resolving]

NARRATIVE: CASE EVENT DATE: 20231122
